FAERS Safety Report 10223577 (Version 1)
Quarter: 2014Q2

REPORT INFORMATION
  Report Type: Spontaneous
  Country: IT (occurrence: IT)
  Receive Date: 20140609
  Receipt Date: 20140609
  Transmission Date: 20141212
  Serious: Yes (Other)
  Sender: FDA-Public Use
  Company Number: IT-BRISTOL-MYERS SQUIBB COMPANY-20579751

PATIENT
  Age: 76 Year
  Sex: Female

DRUGS (1)
  1. COUMADIN TABS 5 MG [Suspect]
     Route: 048
     Dates: start: 20121226, end: 20131226

REACTIONS (5)
  - Haematemesis [Unknown]
  - Gastrooesophageal reflux disease [Unknown]
  - Nausea [Unknown]
  - International normalised ratio increased [Unknown]
  - Overdose [Unknown]
